FAERS Safety Report 17163302 (Version 1)
Quarter: 2019Q4

REPORT INFORMATION
  Report Type: Spontaneous
  Country: GB (occurrence: GB)
  Receive Date: 20191217
  Receipt Date: 20191217
  Transmission Date: 20200122
  Serious: No
  Sender: FDA-Public Use
  Company Number: GB-ALKEM LABORATORIES LIMITED-GB-ALKEM-2019-09465

PATIENT
  Age: 81 Year
  Sex: Female
  Weight: 72 kg

DRUGS (18)
  1. SOLIFENACIN [Suspect]
     Active Substance: SOLIFENACIN
     Indication: PRODUCT USED FOR UNKNOWN INDICATION
     Dosage: UNK
     Route: 065
     Dates: start: 20180717
  2. CANDESARTAN. [Concomitant]
     Active Substance: CANDESARTAN
     Indication: ILL-DEFINED DISORDER
     Dosage: ONE TO BE TAKEN DAILY
     Route: 065
     Dates: start: 20180417
  3. CHLORAMPHENICOL [Concomitant]
     Active Substance: CHLORAMPHENICOL
     Indication: ILL-DEFINED DISORDER
     Dosage: ONE DROP 4 TIMES/DAY
     Route: 065
     Dates: start: 20180504, end: 20180509
  4. LORATADINE. [Concomitant]
     Active Substance: LORATADINE
     Indication: ILL-DEFINED DISORDER
     Dosage: ONE TO BE TAKEN DAILY
     Route: 065
     Dates: start: 20180417
  5. RAPITIL [Concomitant]
     Indication: ILL-DEFINED DISORDER
     Dosage: AS DIRECTED
     Route: 065
     Dates: start: 20180213, end: 20180614
  6. CODEINE PHOSPHATE [Concomitant]
     Active Substance: CODEINE PHOSPHATE
     Indication: ILL-DEFINED DISORDER
     Dosage: 1 -2 QID
     Route: 065
     Dates: start: 20180417
  7. HYPROMELLOSE [Concomitant]
     Active Substance: HYPROMELLOSES
     Indication: ILL-DEFINED DISORDER
     Dosage: USE FOUR TIMES A DAY
     Route: 065
     Dates: start: 20180417, end: 20180614
  8. ACETYLSALICYLIC ACID [Concomitant]
     Active Substance: ASPIRIN
     Indication: ILL-DEFINED DISORDER
     Dosage: OM
     Route: 065
     Dates: start: 20180417
  9. CARMRLLOSE SODIUM [Concomitant]
     Indication: ILL-DEFINED DISORDER
     Dosage: PUT ONE OR TWO DROPS INTO THE AFFECTED EYE(S) W...
     Route: 065
     Dates: start: 20180601
  10. ESTRADIOL. [Concomitant]
     Active Substance: ESTRADIOL
     Indication: ILL-DEFINED DISORDER
     Dosage: INSERT ONE PESSARY INTO THE VAGINA EACH EVENING...
     Route: 065
     Dates: start: 20180717
  11. CIPROFIBRATE [Concomitant]
     Active Substance: CIPROFIBRATE
     Indication: ILL-DEFINED DISORDER
     Dosage: ONE TO BE TAKEN DAILY
     Route: 065
     Dates: start: 20180417
  12. IBUPROFEN. [Concomitant]
     Active Substance: IBUPROFEN
     Indication: ILL-DEFINED DISORDER
     Dosage: APPLY 3-4 TIMES/DAY
     Route: 065
     Dates: start: 20180614, end: 20180615
  13. QUININE [Concomitant]
     Active Substance: QUININE
     Indication: ILL-DEFINED DISORDER
     Dosage: ONE TO BE TAKEN AT NIGHT
     Route: 065
     Dates: start: 20170324
  14. BENDROFLUMETHIAZIDE [Concomitant]
     Active Substance: BENDROFLUMETHIAZIDE
     Indication: ILL-DEFINED DISORDER
     Dosage: ONE TO BE TAKEN EACH MORNING
     Route: 065
     Dates: start: 20180417
  15. NEDOCROMIL SODIUM. [Concomitant]
     Active Substance: NEDOCROMIL SODIUM
     Indication: ILL-DEFINED DISORDER
     Dosage: ONE TO BE TAKEN TWICE A DAY
     Route: 065
     Dates: start: 20170324
  16. PARACETAMOL [Concomitant]
     Active Substance: ACETAMINOPHEN
     Indication: ILL-DEFINED DISORDER
     Dosage: 1-2 UP TO TO BE TAKEN FOUR TIMES DAILY WHEN REQ...
     Route: 065
     Dates: start: 20180417
  17. TOLTERODINE TARTRATE. [Concomitant]
     Active Substance: TOLTERODINE TARTRATE
     Indication: ILL-DEFINED DISORDER
     Dosage: TAKE ONE TWICE DAILY
     Route: 065
     Dates: start: 20180625, end: 20180717
  18. VENTOLIN [Concomitant]
     Active Substance: ALBUTEROL SULFATE
     Indication: ILL-DEFINED DISORDER
     Dosage: 2 PUFFS AS REQUIRED
     Route: 065
     Dates: start: 20170324, end: 20180523

REACTIONS (3)
  - Dyspepsia [Recovering/Resolving]
  - Dry mouth [Recovering/Resolving]
  - Pruritus [Recovering/Resolving]

NARRATIVE: CASE EVENT DATE: 20180719
